FAERS Safety Report 7969434-2 (Version None)
Quarter: 2011Q4

REPORT INFORMATION
  Report Type: 
  Country: None (occurrence: None)
  Receive Date: 20111212
  Receipt Date: 20111202
  Transmission Date: 20120403
  Serious: Yes (Hospitalization)
  Sender: FDA-Public Use
  Company Number: US-BIOGENIDEC-2011BI020592

PATIENT
  Age: 52 Year
  Sex: Male

DRUGS (1)
  1. TYSABRI [Suspect]
     Indication: MULTIPLE SCLEROSIS
     Route: 042
     Dates: start: 20110311

REACTIONS (8)
  - MUSCULOSKELETAL STIFFNESS [None]
  - BRAIN NEOPLASM BENIGN [None]
  - PAIN IN EXTREMITY [None]
  - LIGAMENT SPRAIN [None]
  - MUSCLE SPASMS [None]
  - CEREBRAL CYST [None]
  - BLISTER [None]
  - CONVULSION [None]
